FAERS Safety Report 14283274 (Version 1)
Quarter: 2017Q4

REPORT INFORMATION
  Report Type: Spontaneous
  Country: US (occurrence: US)
  Receive Date: 20171213
  Receipt Date: 20171213
  Transmission Date: 20180321
  Serious: No
  Sender: FDA-Public Use
  Company Number: US-GLAXOSMITHKLINE-US2017191273

PATIENT
  Age: 59 Year
  Sex: Male

DRUGS (1)
  1. INCRUSE ELLIPTA [Suspect]
     Active Substance: UMECLIDINIUM BROMIDE
     Indication: CHRONIC OBSTRUCTIVE PULMONARY DISEASE
     Dosage: UNK
     Route: 055
     Dates: start: 20171211

REACTIONS (4)
  - Asthma [Unknown]
  - Wrong technique in device usage process [Unknown]
  - Product label confusion [Unknown]
  - Overdose [Unknown]

NARRATIVE: CASE EVENT DATE: 20171211
